FAERS Safety Report 4919844-2 (Version None)
Quarter: 2006Q1

REPORT INFORMATION
  Report Type: 
  Country: None (occurrence: None)
  Receive Date: 20060216
  Receipt Date: 20060213
  Transmission Date: 20060701
  Serious: Yes (Hospitalization)
  Sender: FDA-Public Use
  Company Number: FR-2006-001818

PATIENT
  Age: 30 Year
  Sex: Male

DRUGS (5)
  1. BETAFERON 250 UG, 500 UG AND COPAXONE (BETAFERON (SH Y03967A)) INJECTI [Suspect]
     Indication: RELAPSING-REMITTING MULTIPLE SCLEROSIS
     Dosage: 8 OR 16 MIU, EVERY 2D, SUBCUTANEOUS
     Route: 058
     Dates: start: 20040603
  2. IBUPROFEN [Concomitant]
  3. YOHIMBE (YOHIMBINE) [Concomitant]
  4. GUARANA (PAULLINIA CUPANA) [Concomitant]
  5. LYCOPODIIUM [Concomitant]

REACTIONS (6)
  - EPILEPSY [None]
  - HEAD INJURY [None]
  - HEADACHE [None]
  - POST PROCEDURAL COMPLICATION [None]
  - SYNCOPE VASOVAGAL [None]
  - VERTIGO POSITIONAL [None]
